FAERS Safety Report 24752505 (Version 1)
Quarter: 2024Q4

REPORT INFORMATION
  Report Type: Spontaneous
  Country: CA (occurrence: CA)
  Receive Date: 20241219
  Receipt Date: 20241219
  Transmission Date: 20250114
  Serious: Yes (Other)
  Sender: ORGANON
  Company Number: CA-ORGANON-O2412CAN001180

PATIENT
  Age: 66 Year
  Sex: Female

DRUGS (1)
  1. ZENHALE [Suspect]
     Active Substance: FORMOTEROL FUMARATE\MOMETASONE FUROATE
     Dosage: UNK

REACTIONS (5)
  - Mycobacterium avium complex infection [Unknown]
  - Stress [Unknown]
  - Product delivery mechanism issue [Unknown]
  - Poor quality device used [Unknown]
  - Circumstance or information capable of leading to medication error [Unknown]
